FAERS Safety Report 7770454-1 (Version None)
Quarter: 2011Q3

REPORT INFORMATION
  Report Type: 
  Country: None (occurrence: None)
  Receive Date: 20110922
  Receipt Date: 20100809
  Transmission Date: 20111222
  Serious: No
  Sender: FDA-Public Use
  Company Number: US-ASTRAZENECA-2008UW08951

PATIENT
  Age: 19441 Day
  Sex: Female
  Weight: 73.9 kg

DRUGS (14)
  1. RISPERDAL [Concomitant]
     Indication: BIPOLAR DISORDER
     Dosage: 0.5-2 MG
     Dates: start: 19991008, end: 20060508
  2. ZYPREXA [Concomitant]
     Indication: BIPOLAR DISORDER
     Dates: start: 20010501, end: 20040801
  3. ZYPREXA [Concomitant]
     Indication: INSOMNIA
     Dates: start: 20010501, end: 20040801
  4. SEROQUEL [Suspect]
     Indication: DEPRESSION
     Route: 048
     Dates: start: 20040219, end: 20081214
  5. SEROQUEL [Suspect]
     Indication: INSOMNIA
     Route: 048
     Dates: start: 20040219, end: 20081214
  6. RISPERDAL [Concomitant]
     Indication: DEPRESSION
     Dosage: 0.5-2 MG
     Dates: start: 19991008, end: 20060508
  7. RISPERDAL [Concomitant]
     Indication: INSOMNIA
     Dosage: 0.5-2 MG
     Dates: start: 19991008, end: 20060508
  8. ZYPREXA [Concomitant]
     Indication: DEPRESSION
     Dates: start: 20010501, end: 20040801
  9. ABILIFY [Concomitant]
     Dates: start: 20060401, end: 20081201
  10. ZYPREXA [Concomitant]
     Indication: ANXIETY
     Dates: start: 20010501, end: 20040801
  11. SEROQUEL [Suspect]
     Indication: ANXIETY
     Route: 048
     Dates: start: 20040219, end: 20081214
  12. CLONIDINE [Concomitant]
     Dates: start: 19990801
  13. SEROQUEL [Suspect]
     Indication: BIPOLAR DISORDER
     Route: 048
     Dates: start: 20040219, end: 20081214
  14. RISPERDAL [Concomitant]
     Indication: ANXIETY
     Dosage: 0.5-2 MG
     Dates: start: 19991008, end: 20060508

REACTIONS (10)
  - TYPE 2 DIABETES MELLITUS [None]
  - BLOOD CHOLESTEROL INCREASED [None]
  - HYPERLIPIDAEMIA [None]
  - ACCIDENTAL OVERDOSE [None]
  - BLOOD TRIGLYCERIDES INCREASED [None]
  - OBESITY [None]
  - BACK DISORDER [None]
  - DIABETIC COMPLICATION [None]
  - ADVERSE DRUG REACTION [None]
  - DIABETES MELLITUS [None]
